FAERS Safety Report 6800648-0 (Version None)
Quarter: 2010Q2

REPORT INFORMATION
  Report Type: 
  Country: None (occurrence: None)
  Receive Date: 20100625
  Receipt Date: 20100625
  Transmission Date: 20101027
  Serious: Yes (Other)
  Sender: FDA-Public Use
  Company Number: None

PATIENT
  Age: 40 Year
  Sex: Female
  Weight: 65.7716 kg

DRUGS (1)
  1. CORTISONE ACETATE INJ [Suspect]
     Indication: NERVOUS SYSTEM DISORDER

REACTIONS (10)
  - DIZZINESS [None]
  - FALL [None]
  - FATIGUE [None]
  - FEELING ABNORMAL [None]
  - HEADACHE [None]
  - HOT FLUSH [None]
  - HYPERHIDROSIS [None]
  - NECK PAIN [None]
  - PAIN IN EXTREMITY [None]
  - SOMNOLENCE [None]
